FAERS Safety Report 19702580 (Version 2)
Quarter: 2021Q3

REPORT INFORMATION
  Report Type: Spontaneous
  Country: AR (occurrence: AR)
  Receive Date: 20210815
  Receipt Date: 20210922
  Transmission Date: 20211014
  Serious: Yes (Hospitalization, Other)
  Sender: FDA-Public Use
  Company Number: AR-AMGEN-ARGSP2021124268

PATIENT
  Age: 44 Year
  Sex: Female

DRUGS (1)
  1. ENBREL [Suspect]
     Active Substance: ETANERCEPT
     Indication: RHEUMATOID ARTHRITIS
     Dosage: 50 MG, WEEKLY
     Route: 065
     Dates: start: 20170331

REACTIONS (8)
  - COVID-19 [Unknown]
  - Malaise [Unknown]
  - Anaemia [Unknown]
  - Pneumonia [Unknown]
  - Decreased immune responsiveness [Unknown]
  - American trypanosomiasis [Unknown]
  - Feeding disorder [Unknown]
  - Gait disturbance [Not Recovered/Not Resolved]
